FAERS Safety Report 18295703 (Version 1)
Quarter: 2020Q3

REPORT INFORMATION
  Report Type: Spontaneous
  Country: US (occurrence: US)
  Receive Date: 20200922
  Receipt Date: 20200922
  Transmission Date: 20201103
  Serious: No
  Sender: FDA-Public Use
  Company Number: US-AMARIN PHARMA, INC.-2020AMR000349

PATIENT
  Age: 78 Year
  Sex: Male
  Weight: 79.45 kg

DRUGS (3)
  1. REPATHA [Concomitant]
     Active Substance: EVOLOCUMAB
     Indication: BLOOD CHOLESTEROL INCREASED
     Dates: start: 201908
  2. ALLOPURINOL. [Concomitant]
     Active Substance: ALLOPURINOL
     Indication: PRODUCT USED FOR UNKNOWN INDICATION
  3. VASCEPA [Suspect]
     Active Substance: ICOSAPENT ETHYL
     Indication: BLOOD TRIGLYCERIDES INCREASED
     Route: 048
     Dates: end: 20200517

REACTIONS (8)
  - Pain [Unknown]
  - Product odour abnormal [Unknown]
  - Product taste abnormal [Unknown]
  - Chest discomfort [Unknown]
  - Foreign body in throat [Unknown]
  - Product physical issue [Unknown]
  - Gastrointestinal pain [Unknown]
  - Product coating issue [Unknown]

NARRATIVE: CASE EVENT DATE: 202005
